FAERS Safety Report 5781578-2 (Version None)
Quarter: 2008Q2

REPORT INFORMATION
  Report Type: 
  Country: None (occurrence: None)
  Receive Date: 20080623
  Receipt Date: 20070717
  Transmission Date: 20081010
  Serious: No
  Sender: FDA-Public Use
  Company Number: US-ASTRAZENECA-2007UW16957

PATIENT
  Age: 73 Year
  Sex: Male
  Weight: 104.3 kg

DRUGS (3)
  1. RHINOCORT [Suspect]
     Indication: POSTNASAL DRIP
     Dosage: 1 SPRAY EACH NOSTRIL
     Route: 045
  2. VYTORIN [Concomitant]
  3. DIOVAN [Concomitant]

REACTIONS (1)
  - CONTUSION [None]
